FAERS Safety Report 5151895-8 (Version None)
Quarter: 2006Q4

REPORT INFORMATION
  Report Type: 
  Country: None (occurrence: None)
  Receive Date: 20061108
  Receipt Date: 20061030
  Transmission Date: 20070319
  Serious: Yes (Hospitalization)
  Sender: FDA-Public Use
  Company Number: HQWYE658705OCT06

PATIENT
  Age: 56 Year
  Sex: Female

DRUGS (7)
  1. RAPAMUNE [Suspect]
     Indication: PROPHYLAXIS AGAINST TRANSPLANT REJECTION
     Dosage: 4 MG 1X PER 1 DAY ORAL; SEE IMAGE
     Route: 048
     Dates: start: 20060803, end: 20060901
  2. RAPAMUNE [Suspect]
     Indication: PROPHYLAXIS AGAINST TRANSPLANT REJECTION
     Dosage: 4 MG 1X PER 1 DAY ORAL; SEE IMAGE
     Route: 048
     Dates: start: 20060901, end: 20060901
  3. RAPAMUNE [Suspect]
     Indication: PROPHYLAXIS AGAINST TRANSPLANT REJECTION
     Dosage: 4 MG 1X PER 1 DAY ORAL; SEE IMAGE
     Route: 048
     Dates: start: 20060901, end: 20060901
  4. RAPAMUNE [Suspect]
     Indication: PROPHYLAXIS AGAINST TRANSPLANT REJECTION
     Dosage: 4 MG 1X PER 1 DAY ORAL; SEE IMAGE
     Route: 048
     Dates: start: 20060901, end: 20060920
  5. CELLCEPT [Suspect]
     Dosage: 1.5 G 1X PER 1 DAY
  6. CORTICOSTEROID NOS (CORTICOSTEROID NOS) [Concomitant]
  7. UNSPECIFIED ANTIDIABETIC AGENT (UNSPECIFIED ANTIDIABETIC AGENT) [Concomitant]

REACTIONS (5)
  - DIARRHOEA [None]
  - GRAFT VERSUS HOST DISEASE [None]
  - NAUSEA [None]
  - PYREXIA [None]
  - VOMITING [None]
